FAERS Safety Report 7134766-7 (Version None)
Quarter: 2010Q4

REPORT INFORMATION
  Report Type: 
  Country: None (occurrence: None)
  Receive Date: 20101203
  Receipt Date: 20101125
  Transmission Date: 20110411
  Serious: No
  Sender: FDA-Public Use
  Company Number: BR-ROCHE-744614

PATIENT
  Sex: Female
  Weight: 60 kg

DRUGS (1)
  1. ROACUTAN [Suspect]
     Route: 065
     Dates: start: 20100301, end: 20100601

REACTIONS (3)
  - DRUG EXPOSURE DURING PREGNANCY [None]
  - NO ADVERSE EVENT [None]
  - PREGNANCY [None]
